FAERS Safety Report 12804784 (Version 1)
Quarter: 2016Q4

REPORT INFORMATION
  Report Type: Report from Study
  Country: US (occurrence: US)
  Receive Date: 20161003
  Receipt Date: 20161003
  Transmission Date: 20170207
  Serious: Yes (Other)
  Sender: FDA-Public Use
  Company Number: US-AMGEN-USASL2016133773

PATIENT

DRUGS (1)
  1. KYPROLIS [Suspect]
     Active Substance: CARFILZOMIB
     Indication: PRODUCT USED FOR UNKNOWN INDICATION
     Dosage: UNK
     Route: 065

REACTIONS (9)
  - Chronic kidney disease [Unknown]
  - Cardiac murmur [Unknown]
  - Malabsorption [Unknown]
  - Metastases to bone marrow [Unknown]
  - Cancer pain [Unknown]
  - Arrhythmia [Unknown]
  - Metastases to bone [Unknown]
  - Nephrogenic anaemia [Unknown]
  - Thrombocytopenia [Unknown]

NARRATIVE: CASE EVENT DATE: 20140520
